FAERS Safety Report 21237984 (Version 1)
Quarter: 2022Q3

REPORT INFORMATION
  Report Type: Spontaneous
  Country: US (occurrence: US)
  Receive Date: 20220822
  Receipt Date: 20220822
  Transmission Date: 20221026
  Serious: No
  Sender: FDA-Public Use
  Company Number: US-GSKCCFUS-Case-01464310_AE-83840

PATIENT
  Sex: Male

DRUGS (1)
  1. ARNUITY ELLIPTA [Suspect]
     Active Substance: FLUTICASONE FUROATE
     Indication: Asthma
     Dosage: UNK, 100MCG, EVERY OTHER DAY, EVERY 2 DAYS
     Route: 055

REACTIONS (3)
  - Wrong technique in device usage process [Unknown]
  - Product confusion [Unknown]
  - Underdose [Unknown]
